FAERS Safety Report 4375535-0 (Version None)
Quarter: 2004Q2

REPORT INFORMATION
  Report Type: 
  Country: None (occurrence: None)
  Receive Date: 20040607
  Receipt Date: 20040527
  Transmission Date: 20050107
  Serious: Yes (Other)
  Sender: FDA-Public Use
  Company Number: 2004-05-2074

PATIENT

DRUGS (3)
  1. EULEXIN [Suspect]
     Dosage: 125 MG BID ORAL
     Route: 048
     Dates: start: 20020901
  2. LAMICTAL [Suspect]
  3. WARFARIN SODIUM [Concomitant]

REACTIONS (2)
  - CONVULSION [None]
  - DRUG INTERACTION [None]
